FAERS Safety Report 8793184 (Version 3)
Quarter: 2015Q3

REPORT INFORMATION
  Report Type: Report from Study
  Country: US (occurrence: US)
  Receive Date: 20120918
  Receipt Date: 20150702
  Transmission Date: 20151125
  Serious: Yes (Death, Other)
  Sender: FDA-Public Use
  Company Number: US-ROCHE-1124714

PATIENT
  Sex: Female

DRUGS (21)
  1. HEPARIN [Concomitant]
     Active Substance: HEPARIN SODIUM
     Dosage: 5000 UNITS
     Route: 042
  2. PEGFILGRASTIM [Concomitant]
     Active Substance: PEGFILGRASTIM
     Route: 058
  3. ADVIL [Concomitant]
     Active Substance: IBUPROFEN
  4. PERCOCET [Concomitant]
     Active Substance: ACETAMINOPHEN\OXYCODONE HYDROCHLORIDE
     Route: 065
  5. COMPAZINE [Concomitant]
     Active Substance: PROCHLORPERAZINE MALEATE
  6. BENADRYL [Concomitant]
     Active Substance: DIPHENHYDRAMINE HYDROCHLORIDE
     Route: 042
  7. IMODIUM [Concomitant]
     Active Substance: LOPERAMIDE HYDROCHLORIDE
  8. EMEND [Concomitant]
     Active Substance: APREPITANT
  9. ARANESP [Concomitant]
     Active Substance: DARBEPOETIN ALFA
     Route: 058
  10. ARANESP [Concomitant]
     Active Substance: DARBEPOETIN ALFA
     Route: 058
  11. ALBUTEROL. [Concomitant]
     Active Substance: ALBUTEROL
  12. CARBOPLATIN. [Concomitant]
     Active Substance: CARBOPLATIN
     Route: 065
  13. TAXOL [Concomitant]
     Active Substance: PACLITAXEL
     Route: 042
  14. AVASTIN [Suspect]
     Active Substance: BEVACIZUMAB
     Indication: MALIGNANT MELANOMA
     Route: 042
     Dates: start: 20090408
  15. ALOXI [Concomitant]
     Active Substance: PALONOSETRON HYDROCHLORIDE
     Route: 042
  16. ALOXI [Concomitant]
     Active Substance: PALONOSETRON HYDROCHLORIDE
     Route: 042
  17. KEPPRA [Concomitant]
     Active Substance: LEVETIRACETAM
  18. CIMETIDINE [Concomitant]
     Active Substance: CIMETIDINE
     Route: 042
  19. DEXAMETHASONE. [Concomitant]
     Active Substance: DEXAMETHASONE
     Route: 042
  20. SYNTHROID [Concomitant]
     Active Substance: LEVOTHYROXINE SODIUM
  21. TRICOR [Concomitant]
     Active Substance: FENOFIBRATE

REACTIONS (19)
  - Post procedural haematoma [Recovering/Resolving]
  - Dizziness [Unknown]
  - Abdominal distension [Unknown]
  - Off label use [Unknown]
  - Anaemia of malignant disease [Unknown]
  - Cough [Unknown]
  - Hypoaesthesia [Unknown]
  - Urinary hesitation [Unknown]
  - Anaemia [Unknown]
  - Headache [Unknown]
  - Post procedural oedema [Unknown]
  - Fatigue [Unknown]
  - Haemorrhagic ascites [Unknown]
  - Oedema peripheral [Unknown]
  - Diarrhoea [Unknown]
  - Disease progression [Fatal]
  - Muscular weakness [Unknown]
  - Sneezing [Unknown]
  - Nausea [Unknown]
